FAERS Safety Report 20791007 (Version 1)
Quarter: 2022Q2

REPORT INFORMATION
  Report Type: Spontaneous
  Country: US (occurrence: US)
  Receive Date: 20220505
  Receipt Date: 20220505
  Transmission Date: 20220721
  Serious: Yes (Other)
  Sender: FDA-Public Use
  Company Number: US-AMGEN-USASP2022076160

PATIENT
  Age: 37 Year
  Sex: Female
  Weight: 105 kg

DRUGS (2)
  1. AIMOVIG [Suspect]
     Active Substance: ERENUMAB-AOOE
     Indication: Migraine
     Dosage: 70 MILLIGRAM, QMO
     Route: 065
     Dates: end: 201912
  2. AIMOVIG [Suspect]
     Active Substance: ERENUMAB-AOOE
     Dosage: 140 MILLIGRAM, QMO
     Route: 065

REACTIONS (10)
  - Pneumonia [Unknown]
  - COVID-19 [Unknown]
  - Fluid retention [Unknown]
  - Abdominal distension [Unknown]
  - Diarrhoea [Unknown]
  - Weight increased [Unknown]
  - Injection site bruising [Unknown]
  - Injection site rash [Unknown]
  - Therapeutic product effect decreased [Unknown]
  - Swelling [Unknown]

NARRATIVE: CASE EVENT DATE: 20220101
